FAERS Safety Report 22300909 (Version 3)
Quarter: 2025Q2

REPORT INFORMATION
  Report Type: Spontaneous
  Country: US (occurrence: US)
  Receive Date: 20230509
  Receipt Date: 20250511
  Transmission Date: 20250717
  Serious: No
  Sender: SANOFI AVENTIS
  Company Number: US-SA-SAC20230501001832

PATIENT
  Age: 62 Year
  Sex: Male
  Weight: 122.73 kg

DRUGS (20)
  1. DUPIXENT [Suspect]
     Active Substance: DUPILUMAB
     Indication: Pruritus
  2. DUPIXENT [Suspect]
     Active Substance: DUPILUMAB
     Indication: Formication
     Dosage: 300MG, QOW
  3. DUPIXENT [Suspect]
     Active Substance: DUPILUMAB
     Indication: Dermatitis atopic
     Dosage: 300 MG, QM
     Route: 058
     Dates: start: 20250414
  4. DUPIXENT [Suspect]
     Active Substance: DUPILUMAB
     Dosage: 300 MG, QOW
     Route: 058
     Dates: start: 202211, end: 202212
  5. JARDIANCE [Concomitant]
     Active Substance: EMPAGLIFLOZIN
  6. HYDROCHLOROTHIAZIDE\LOSARTAN [Concomitant]
     Active Substance: HYDROCHLOROTHIAZIDE\LOSARTAN
  7. DOXAZOSIN MESYLATE [Concomitant]
     Active Substance: DOXAZOSIN MESYLATE
  8. HUMULIN 70/30 [Concomitant]
     Active Substance: INSULIN HUMAN
     Dosage: 50 UNITS IN MORNING 50 UNITS IN THE EVENING
  9. EPIPEN [Concomitant]
     Active Substance: EPINEPHRINE
  10. JANUVIA [Concomitant]
     Active Substance: SITAGLIPTIN PHOSPHATE
  11. METAMUCIL SUGAR FREE [Concomitant]
  12. DOXYCYCLINE HYCLATE [Concomitant]
     Active Substance: DOXYCYCLINE HYCLATE
  13. CARVEDILOL [Concomitant]
     Active Substance: CARVEDILOL
  14. BENZOYL PEROXIDE\CLINDAMYCIN [Concomitant]
     Active Substance: BENZOYL PEROXIDE\CLINDAMYCIN
  15. TAMSULOSIN HYDROCHLORIDE [Concomitant]
     Active Substance: TAMSULOSIN HYDROCHLORIDE
  16. NOVOLOG [Concomitant]
     Active Substance: INSULIN ASPART
  17. ALBUTEROL SULFATE [Concomitant]
     Active Substance: ALBUTEROL SULFATE
  18. TROLAMINE [Concomitant]
     Active Substance: TROLAMINE
  19. CLARITHROMYCIN [Concomitant]
     Active Substance: CLARITHROMYCIN
  20. FLUTICASONE PROPIONATE [Concomitant]
     Active Substance: FLUTICASONE PROPIONATE

REACTIONS (7)
  - Dermatitis papillaris capillitii [Unknown]
  - Visual impairment [Recovering/Resolving]
  - Diarrhoea [Recovered/Resolved]
  - Injection site pain [Recovering/Resolving]
  - Product preparation error [Recovering/Resolving]
  - Product use in unapproved indication [Unknown]
  - Inappropriate schedule of product administration [Unknown]

NARRATIVE: CASE EVENT DATE: 20221101
